FAERS Safety Report 8215762-5 (Version None)
Quarter: 2012Q1

REPORT INFORMATION
  Report Type: 
  Country: None (occurrence: None)
  Receive Date: 20120316
  Receipt Date: 20120306
  Transmission Date: 20120608
  Serious: Yes (Hospitalization)
  Sender: FDA-Public Use
  Company Number: JP-ACTELION-A-CH2012-62436

PATIENT
  Sex: Female
  Weight: 37 kg

DRUGS (10)
  1. ETODOLAC [Concomitant]
  2. THEOPHYLLINE [Concomitant]
  3. TRACLEER [Suspect]
     Indication: PULMONARY HYPERTENSION
     Dosage: 125 MG, BID
     Route: 048
     Dates: start: 20090611
  4. VERAPAMIL HYDROCHLORIDE [Concomitant]
  5. SPIRONOLACTONE [Concomitant]
  6. FUROSEMIDE [Concomitant]
  7. DIGOXIN [Concomitant]
  8. LANSOPRAZOLE [Concomitant]
  9. ERYTHROMYCIN ETHYLSUCCINATE [Concomitant]
  10. ISOSORBIDE MONONITRATE [Concomitant]

REACTIONS (6)
  - RESPIRATORY TRACT INFECTION [None]
  - GAMMA-GLUTAMYLTRANSFERASE INCREASED [None]
  - ALANINE AMINOTRANSFERASE INCREASED [None]
  - WHITE BLOOD CELL COUNT INCREASED [None]
  - ASPARTATE AMINOTRANSFERASE INCREASED [None]
  - LIVER FUNCTION TEST ABNORMAL [None]
